FAERS Safety Report 6097631-2 (Version None)
Quarter: 2009Q1

REPORT INFORMATION
  Report Type: 
  Country: None (occurrence: None)
  Receive Date: 20090225
  Receipt Date: 20090225
  Transmission Date: 20090719
  Serious: Yes (Other)
  Sender: FDA-Public Use
  Company Number: None

PATIENT
  Age: 7 Year
  Sex: Male

DRUGS (2)
  1. SINGULAIR [Suspect]
     Indication: ASTHMA PROPHYLAXIS
     Dosage: 1X/DAY PO
     Route: 048
     Dates: start: 20020927, end: 20021002
  2. SINGULAIR [Suspect]
     Indication: HYPERSENSITIVITY
     Dosage: 1X/DAY PO
     Route: 048
     Dates: start: 20020927, end: 20021002

REACTIONS (11)
  - ABNORMAL BEHAVIOUR [None]
  - AGGRESSION [None]
  - ANGER [None]
  - ANXIETY [None]
  - DEPRESSED LEVEL OF CONSCIOUSNESS [None]
  - FEAR [None]
  - NIGHTMARE [None]
  - PARANOIA [None]
  - PERSONALITY CHANGE [None]
  - SCREAMING [None]
  - THERAPEUTIC AGENT TOXICITY [None]
